FAERS Safety Report 6052843-9 (Version None)
Quarter: 2009Q1

REPORT INFORMATION
  Report Type: 
  Country: None (occurrence: None)
  Receive Date: 20090127
  Receipt Date: 20090126
  Transmission Date: 20090719
  Serious: Yes (Hospitalization, Other)
  Sender: FDA-Public Use
  Company Number: US-BAYER-200834511NA

PATIENT
  Age: 67 Year
  Sex: Female
  Weight: 48 kg

DRUGS (10)
  1. CIPRO [Suspect]
     Indication: URINARY TRACT INFECTION
     Route: 042
     Dates: start: 20080301
  2. HEPARIN [Suspect]
     Dates: start: 20080301
  3. IRON SULFATETHIAMIN COMPOUND TAB [Suspect]
     Dates: start: 20080301
  4. NYSTATIN [Concomitant]
  5. DETROL [Concomitant]
  6. BISACODYL [Concomitant]
  7. IRON SULFATETHIAMIN COMPOUND TAB [Concomitant]
  8. COLACE [Concomitant]
  9. SENNA [Concomitant]
  10. HEPARIN [Concomitant]

REACTIONS (13)
  - ABDOMINAL DISTENSION [None]
  - ASPIRATION [None]
  - CONSTIPATION [None]
  - COUGH [None]
  - DYSPEPSIA [None]
  - DYSPNOEA [None]
  - HYPERSENSITIVITY [None]
  - MUSCULOSKELETAL CHEST PAIN [None]
  - OEDEMA [None]
  - PAINFUL RESPIRATION [None]
  - PLEURAL EFFUSION [None]
  - PNEUMONIA [None]
  - PRURITUS [None]
